FAERS Safety Report 15695581 (Version 1)
Quarter: 2018Q4

REPORT INFORMATION
  Report Type: Spontaneous
  Country: FI (occurrence: FI)
  Receive Date: 20181206
  Receipt Date: 20181206
  Transmission Date: 20190205
  Serious: Yes (Hospitalization)
  Sender: FDA-Public Use
  Company Number: FI-TEVA-2018-FI-982940

PATIENT
  Age: 37 Year
  Sex: Male

DRUGS (1)
  1. ANTABUS [Suspect]
     Active Substance: DISULFIRAM
     Route: 048
     Dates: start: 201809

REACTIONS (2)
  - Alanine aminotransferase increased [Recovering/Resolving]
  - Liver injury [Recovering/Resolving]

NARRATIVE: CASE EVENT DATE: 20181101
